FAERS Safety Report 7931881-2 (Version None)
Quarter: 2011Q4

REPORT INFORMATION
  Report Type: 
  Country: None (occurrence: None)
  Receive Date: 20111121
  Receipt Date: 20111115
  Transmission Date: 20120403
  Serious: Yes (Hospitalization, Other)
  Sender: FDA-Public Use
  Company Number: JP-PFIZER INC-2011176564

PATIENT
  Sex: Male
  Weight: 3.03 kg

DRUGS (2)
  1. ZOLOFT [Suspect]
     Dosage: 25 MG, 2X/DAY
     Route: 064
     Dates: start: 20110301
  2. ALPRAZOLAM [Suspect]
     Dosage: 0.4 MG, 2X/DAY
     Route: 064
     Dates: start: 20110301

REACTIONS (9)
  - MATERNAL EXPOSURE TIMING UNSPECIFIED [None]
  - HYPERTONIA [None]
  - DRUG WITHDRAWAL SYNDROME NEONATAL [None]
  - HYPOTELORISM OF ORBIT [None]
  - MUSCLE SPASTICITY [None]
  - RESTLESSNESS [None]
  - GAZE PALSY [None]
  - IRRITABILITY [None]
  - PALLOR [None]
